FAERS Safety Report 7669916-7 (Version None)
Quarter: 2011Q3

REPORT INFORMATION
  Report Type: 
  Country: None (occurrence: None)
  Receive Date: 20110808
  Receipt Date: 20110802
  Transmission Date: 20111222
  Serious: Yes (Hospitalization)
  Sender: FDA-Public Use
  Company Number: PHHY2011TN69498

PATIENT
  Sex: Male
  Weight: 90 kg

DRUGS (1)
  1. EVEROLIMUS [Suspect]
     Indication: RENAL CANCER
     Dosage: 10 MG, QD
     Route: 048
     Dates: start: 20110321, end: 20110730

REACTIONS (8)
  - HYPOTENSION [None]
  - DECREASED APPETITE [None]
  - MUCOSAL INFLAMMATION [None]
  - ANAEMIA [None]
  - CONSTIPATION [None]
  - HYPOKINESIA [None]
  - NAUSEA [None]
  - VOMITING [None]
